FAERS Safety Report 7318563-5 (Version None)
Quarter: 2011Q1

REPORT INFORMATION
  Report Type: 
  Country: None (occurrence: None)
  Receive Date: 20110228
  Receipt Date: 20110215
  Transmission Date: 20110831
  Serious: Yes (Death)
  Sender: FDA-Public Use
  Company Number: IT-JNJFOC-20110205711

PATIENT
  Sex: Female

DRUGS (4)
  1. DEXAMETHASONE [Suspect]
     Indication: MULTIPLE MYELOMA
     Route: 042
  2. DOXORUBICIN [Suspect]
     Indication: MULTIPLE MYELOMA
     Route: 042
  3. THALIDOMIDE [Suspect]
     Indication: MULTIPLE MYELOMA
     Route: 065
  4. VELCADE [Suspect]
     Indication: MULTIPLE MYELOMA
     Route: 042

REACTIONS (2)
  - PNEUMONIA [None]
  - CARDIAC ARREST [None]
